FAERS Safety Report 24768011 (Version 1)
Quarter: 2024Q4

REPORT INFORMATION
  Report Type: Spontaneous
  Country: ES (occurrence: ES)
  Receive Date: 20241223
  Receipt Date: 20241223
  Transmission Date: 20250115
  Serious: Yes (Other)
  Sender: BAUSCH AND LOMB
  Company Number: ES-BAUSCH-BL-2024-018784

PATIENT
  Age: 41 Year
  Sex: Female

DRUGS (6)
  1. RIFAXIMIN [Suspect]
     Active Substance: RIFAXIMIN
     Indication: Gastrointestinal microorganism overgrowth
     Dosage: 6.0 DOSAGE FORM (2 DOSAGE FORM, 1 IN 8 HOUR)
     Route: 065
     Dates: start: 20241207
  2. METRONIDAZOLE [Suspect]
     Active Substance: METRONIDAZOLE
     Indication: Gastrointestinal microorganism overgrowth
     Route: 065
  3. FLUTICASONE FUROATE\VILANTEROL TRIFENATATE [Concomitant]
     Active Substance: FLUTICASONE FUROATE\VILANTEROL TRIFENATATE
     Indication: Asthma
     Dosage: SHE HAS BEEN TAKING FOR YEARS
     Route: 055
  4. PROBIOTICS NOS [Concomitant]
     Active Substance: PROBIOTICS NOS
     Indication: Product used for unknown indication
     Route: 065
  5. EBASTINE [Concomitant]
     Active Substance: EBASTINE
     Indication: Hypersensitivity
     Dosage: 20 MG DAILY
     Route: 048
  6. VENTOLIN [Concomitant]
     Active Substance: ALBUTEROL SULFATE
     Indication: Asthma
     Dosage: INHALED AS NEEDED (RESCUE MEDICATION), SHE HAS BEEN TAKING FOR YEARS
     Route: 055

REACTIONS (8)
  - Anaphylactic reaction [Recovering/Resolving]
  - Intentional product use issue [Unknown]
  - Illness [Recovering/Resolving]
  - Eczema [Recovering/Resolving]
  - Tachycardia [Recovering/Resolving]
  - Dizziness [Recovering/Resolving]
  - Headache [Recovering/Resolving]
  - Cough [Not Recovered/Not Resolved]

NARRATIVE: CASE EVENT DATE: 20241201
